FAERS Safety Report 16919426 (Version 4)
Quarter: 2019Q4

REPORT INFORMATION
  Report Type: Report from Study
  Country: CO (occurrence: CO)
  Receive Date: 20191015
  Receipt Date: 20191121
  Transmission Date: 20200122
  Serious: Yes (Hospitalization)
  Sender: FDA-Public Use
  Company Number: CO-PFIZER INC-2019013138

PATIENT
  Age: 67 Year
  Sex: Male
  Weight: 84.1 kg

DRUGS (4)
  1. PREDNISONE. [Concomitant]
     Active Substance: PREDNISONE
     Indication: RHEUMATOID ARTHRITIS
     Dosage: 5.0 MG, 1X/DAY
     Route: 048
     Dates: start: 2008
  2. METHOTREXATE. [Concomitant]
     Active Substance: METHOTREXATE
     Indication: RHEUMATOID ARTHRITIS
     Dosage: 10.0 MG, WEEKLY
     Route: 048
     Dates: start: 2008
  3. TOFACITINIB CITRATE [Suspect]
     Active Substance: TOFACITINIB CITRATE
     Indication: RHEUMATOID ARTHRITIS
     Dosage: 10 MG, ONCE DAILY
     Route: 048
     Dates: start: 20161219, end: 20181212
  4. ATORVASTATINE [ATORVASTATIN] [Concomitant]
     Active Substance: ATORVASTATIN
     Indication: DYSLIPIDAEMIA
     Dosage: 20.0 MG, 1X/DAY
     Route: 048
     Dates: start: 20170206

REACTIONS (8)
  - Hepatic cirrhosis [Not Recovered/Not Resolved]
  - Upper gastrointestinal haemorrhage [Recovered/Resolved]
  - Anaemia [Recovered/Resolved]
  - Metabolic encephalopathy [Recovered/Resolved]
  - Mallory-Weiss syndrome [Recovered/Resolved]
  - Renal injury [Not Recovered/Not Resolved]
  - Phlebitis [Recovered/Resolved]
  - Soft tissue infection [Recovered/Resolved]

NARRATIVE: CASE EVENT DATE: 20181211
